FAERS Safety Report 7626443-0 (Version None)
Quarter: 2011Q3

REPORT INFORMATION
  Report Type: 
  Country: None (occurrence: None)
  Receive Date: 20110721
  Receipt Date: 20110718
  Transmission Date: 20111222
  Serious: Yes (Hospitalization)
  Sender: FDA-Public Use
  Company Number: FR-PFIZER INC-2011161639

PATIENT
  Age: 3 Year
  Sex: Male

DRUGS (1)
  1. IBUPROFEN (ADVIL) [Suspect]
     Indication: VARICELLA
     Dosage: 1 DF, 3X/DAY
     Route: 048
     Dates: start: 20110527, end: 20110530

REACTIONS (3)
  - SUPERINFECTION [None]
  - CONDITION AGGRAVATED [None]
  - IMPETIGO [None]
